FAERS Safety Report 11180083 (Version 1)
Quarter: 2015Q2

REPORT INFORMATION
  Report Type: Spontaneous
  Country: US (occurrence: None)
  Receive Date: 20150610
  Receipt Date: 20150610
  Transmission Date: 20150821
  Serious: No
  Sender: FDA-Public Use
  Company Number: None

PATIENT
  Age: 62 Year
  Sex: Male

DRUGS (1)
  1. HEPARIN [Suspect]
     Active Substance: HEPARIN SODIUM
     Dosage: 9200 UNITS UD IV
     Route: 042
     Dates: start: 20140929, end: 20140929

REACTIONS (5)
  - Heparin-induced thrombocytopenia [None]
  - Cheyne-Stokes respiration [None]
  - Encephalopathy [None]
  - Cerebral infarction [None]
  - Pulseless electrical activity [None]

NARRATIVE: CASE EVENT DATE: 20140929
